FAERS Safety Report 7740993-8 (Version None)
Quarter: 2011Q3

REPORT INFORMATION
  Report Type: 
  Country: None (occurrence: None)
  Receive Date: 20110909
  Receipt Date: 20110902
  Transmission Date: 20111222
  Serious: Yes (Death, Other)
  Sender: FDA-Public Use
  Company Number: JP-PFIZER INC-2011120190

PATIENT
  Age: 69 Year
  Sex: Male

DRUGS (3)
  1. FLUCONAZOLE [Suspect]
     Dosage: UNK
  2. FLUCONAZOLE [Suspect]
     Dosage: UNK
  3. VANCOMYCIN HCL [Suspect]

REACTIONS (1)
  - RENAL IMPAIRMENT [None]
